FAERS Safety Report 21579238 (Version 1)
Quarter: 2022Q4

REPORT INFORMATION
  Report Type: Spontaneous
  Country: US (occurrence: None)
  Receive Date: 20221110
  Receipt Date: 20221110
  Transmission Date: 20230113
  Serious: No
  Sender: FDA-Public Use
  Company Number: None

PATIENT
  Sex: 0

DRUGS (1)
  1. DOXORUBICIN [Suspect]
     Active Substance: DOXORUBICIN

REACTIONS (6)
  - Throat irritation [None]
  - Rash macular [None]
  - Rash [None]
  - Infusion related reaction [None]
  - Chest discomfort [None]
  - Therapy cessation [None]

NARRATIVE: CASE EVENT DATE: 20221103
